FAERS Safety Report 6347519-4 (Version None)
Quarter: 2009Q3

REPORT INFORMATION
  Report Type: 
  Country: None (occurrence: None)
  Receive Date: 20090908
  Receipt Date: 20090908
  Transmission Date: 20100115
  Serious: Yes (Other)
  Sender: FDA-Public Use
  Company Number: None

PATIENT
  Age: 59 Year
  Sex: Female
  Weight: 73.6 kg

DRUGS (2)
  1. NASONEX [Suspect]
     Indication: BRONCHITIS
     Dosage: 1 SPRAY IN EACH NOSTRIL 1-2 X DDAILY NOSTRILS
     Route: 045
     Dates: start: 20090803
  2. NASONEX [Suspect]
     Indication: NASOPHARYNGITIS
     Dosage: 1 SPRAY IN EACH NOSTRIL 1-2 X DDAILY NOSTRILS
     Route: 045
     Dates: start: 20090803

REACTIONS (2)
  - AGEUSIA [None]
  - ANOSMIA [None]
